FAERS Safety Report 6747484-1 (Version None)
Quarter: 2010Q2

REPORT INFORMATION
  Report Type: 
  Country: None (occurrence: None)
  Receive Date: 20100528
  Receipt Date: 20100521
  Transmission Date: 20101027
  Serious: Yes (Other)
  Sender: FDA-Public Use
  Company Number: US-MERCK-1005USA03672

PATIENT
  Age: 38 Year
  Sex: Female

DRUGS (2)
  1. SINGULAIR [Suspect]
     Indication: ASTHMA
     Route: 065
  2. SINGULAIR [Suspect]
     Indication: HYPERSENSITIVITY
     Route: 065

REACTIONS (10)
  - ANGER [None]
  - BACK PAIN [None]
  - DEPRESSION [None]
  - HALLUCINATION [None]
  - MOOD SWINGS [None]
  - NAUSEA [None]
  - SINUSITIS [None]
  - SPEECH DISORDER [None]
  - SUICIDAL IDEATION [None]
  - THERAPEUTIC RESPONSE DECREASED [None]
